FAERS Safety Report 6333264-8 (Version None)
Quarter: 2009Q3

REPORT INFORMATION
  Report Type: 
  Country: None (occurrence: None)
  Receive Date: 20090828
  Receipt Date: 20090817
  Transmission Date: 20100115
  Serious: Yes (Other)
  Sender: FDA-Public Use
  Company Number: US-PFIZER INC-2009257768

PATIENT
  Sex: Female

DRUGS (10)
  1. GEODON [Suspect]
     Indication: BIPOLAR I DISORDER
     Dosage: 20 MG, 1X/DAY
  2. GEODON [Suspect]
     Indication: MYALGIA
  3. XANAX [Suspect]
     Indication: BIPOLAR I DISORDER
  4. ZYPREXA [Suspect]
     Indication: BIPOLAR I DISORDER
  5. PALIPERIDONE [Suspect]
     Indication: BIPOLAR I DISORDER
  6. VALPROIC ACID [Suspect]
     Indication: BIPOLAR I DISORDER
  7. SEROQUEL [Suspect]
     Indication: BIPOLAR I DISORDER
  8. LAMICTAL [Concomitant]
     Dosage: UNK
  9. SERAX [Concomitant]
     Dosage: UNK
  10. CLONAZEPAM [Concomitant]
     Dosage: UNK

REACTIONS (8)
  - ANGER [None]
  - BLOOD PRESSURE INCREASED [None]
  - DRUG WITHDRAWAL SYNDROME [None]
  - DYSKINESIA [None]
  - DYSPHAGIA [None]
  - INSOMNIA [None]
  - MYALGIA [None]
  - PSYCHOTIC DISORDER [None]
